FAERS Safety Report 25521198 (Version 2)
Quarter: 2025Q3

REPORT INFORMATION
  Report Type: Spontaneous
  Country: CN (occurrence: CN)
  Receive Date: 20250705
  Receipt Date: 20250726
  Transmission Date: 20251020
  Serious: Yes (Other)
  Sender: IPSEN BIOPHARMACEUTICALS, INC.
  Company Number: CN-SERVIER-S25008955

PATIENT
  Age: 52 Year
  Sex: Male
  Weight: 67 kg

DRUGS (5)
  1. ONIVYDE [Suspect]
     Active Substance: IRINOTECAN HYDROCHLORIDE
     Indication: Intraductal papillary mucinous neoplasm
     Dosage: 86 MG, EVERY 2 WEEKS, ADMINISTERED WITHIN 2 HOURS
     Route: 041
     Dates: start: 2025, end: 2025
  2. ONIVYDE [Suspect]
     Active Substance: IRINOTECAN HYDROCHLORIDE
     Dosage: 86 MG, EVERY 2 WEEKS, ADMINISTERED WITHIN 2 HOURS
     Route: 041
     Dates: start: 2025
  3. OXALIPLATIN [Concomitant]
     Active Substance: OXALIPLATIN
     Indication: Pancreatic carcinoma
  4. FLUOROURACIL [Concomitant]
     Active Substance: FLUOROURACIL
     Indication: Pancreatic carcinoma
  5. LEUCOVORIN CALCIUM [Concomitant]
     Active Substance: LEUCOVORIN CALCIUM
     Indication: Pancreatic carcinoma

REACTIONS (7)
  - Myelosuppression [Recovered/Resolved]
  - Myelosuppression [Unknown]
  - Coccydynia [Recovered/Resolved]
  - Fatigue [Recovering/Resolving]
  - Diarrhoea [Recovered/Resolved]
  - Nausea [Recovering/Resolving]
  - Coccydynia [Recovered/Resolved]

NARRATIVE: CASE EVENT DATE: 20250101
